FAERS Safety Report 7281605-X (Version None)
Quarter: 2011Q1

REPORT INFORMATION
  Report Type: 
  Country: None (occurrence: None)
  Receive Date: 20110208
  Receipt Date: 20110203
  Transmission Date: 20110831
  Serious: Yes (Death, Hospitalization)
  Sender: FDA-Public Use
  Company Number: PHHY2010MX43401

PATIENT
  Age: 79 Year
  Sex: Male

DRUGS (3)
  1. DABEX [Concomitant]
     Indication: DIABETES MELLITUS
     Dosage: 2 DF, QD
     Route: 048
     Dates: start: 20050616
  2. STALEVO 100 [Suspect]
     Indication: PARKINSON'S DISEASE
     Dosage: 2 DF (12.5/200/50 MG), QD
     Route: 048
     Dates: start: 20100406, end: 20100601
  3. INSULIN [Concomitant]
     Indication: DIABETES MELLITUS
     Dosage: 30 IU, UNK
     Route: 042
     Dates: start: 20000601

REACTIONS (9)
  - HAEMOGLOBIN DECREASED [None]
  - MUSCLE ATROPHY [None]
  - MUSCULAR WEAKNESS [None]
  - DYSPNOEA [None]
  - PNEUMONIA [None]
  - POLYMYOSITIS [None]
  - PRURITUS [None]
  - MYOSITIS [None]
  - PYREXIA [None]
